FAERS Safety Report 20508366 (Version 1)
Quarter: 2022Q1

REPORT INFORMATION
  Report Type: Spontaneous
  Country: CA (occurrence: CA)
  Receive Date: 20220223
  Receipt Date: 20220223
  Transmission Date: 20220423
  Serious: Yes (Death)
  Sender: FDA-Public Use
  Company Number: CA-PFIZER INC-202101005680

PATIENT
  Age: 88 Year
  Sex: Female

DRUGS (3)
  1. RUXIENCE [Suspect]
     Active Substance: RITUXIMAB-PVVR
     Dosage: 500MG, DAY 1 AND DAY 15
     Route: 042
     Dates: start: 20210105, end: 20210119
  2. RUXIENCE [Suspect]
     Active Substance: RITUXIMAB-PVVR
     Dosage: 500 MG,DAY 1 AND DAY 15
     Route: 042
     Dates: start: 20210811, end: 20210811
  3. CORTISONE [Concomitant]
     Active Substance: CORTISONE
     Dosage: DOSAGE NOT AVAILABLE

REACTIONS (2)
  - Death [Fatal]
  - Visual impairment [Not Recovered/Not Resolved]

NARRATIVE: CASE EVENT DATE: 20220214
